FAERS Safety Report 12833767 (Version 2)
Quarter: 2016Q4

REPORT INFORMATION
  Report Type: Spontaneous
  Country: JP (occurrence: JP)
  Receive Date: 20161010
  Receipt Date: 20161202
  Transmission Date: 20170207
  Serious: Yes (Other)
  Sender: FDA-Public Use
  Company Number: JP-JNJFOC-20161006345

PATIENT

DRUGS (1)
  1. DOXIL [Suspect]
     Active Substance: DOXORUBICIN HYDROCHLORIDE
     Indication: OVARIAN CANCER RECURRENT
     Route: 042

REACTIONS (11)
  - Vomiting [Unknown]
  - Palmar-plantar erythrodysaesthesia syndrome [Unknown]
  - Ovarian cancer [Unknown]
  - Abdominal pain [Unknown]
  - Hepatic function abnormal [Unknown]
  - Cardiotoxicity [Unknown]
  - Pigmentation disorder [Unknown]
  - Stomatitis [Unknown]
  - Malaise [Unknown]
  - Bone marrow failure [Unknown]
  - Febrile neutropenia [Unknown]
